FAERS Safety Report 9871239 (Version 1)
Quarter: 2014Q1

REPORT INFORMATION
  Report Type: Spontaneous
  Country: US (occurrence: US)
  Receive Date: 20140205
  Receipt Date: 20140205
  Transmission Date: 20141002
  Serious: Yes (Hospitalization)
  Sender: FDA-Public Use
  Company Number: US-GLAXOSMITHKLINE-A1058897A

PATIENT
  Age: 60 Year
  Sex: Female

DRUGS (3)
  1. LOVAZA [Suspect]
     Indication: BLOOD TRIGLYCERIDES INCREASED
     Dosage: 1CAP TWICE PER DAY
     Route: 048
     Dates: start: 2011
  2. MILK THISTLE [Concomitant]
  3. XANAX [Concomitant]

REACTIONS (4)
  - Hepatitis C [Unknown]
  - Chest discomfort [Unknown]
  - Hypertension [Unknown]
  - Stress at work [Unknown]
